FAERS Safety Report 5411596-5 (Version None)
Quarter: 2007Q3

REPORT INFORMATION
  Report Type: 
  Country: None (occurrence: None)
  Receive Date: 20070810
  Receipt Date: 20070730
  Transmission Date: 20080115
  Serious: Yes (Hospitalization)
  Sender: FDA-Public Use
  Company Number: IT-PFIZER INC-2007057862

PATIENT
  Sex: Female
  Weight: 90 kg

DRUGS (6)
  1. DOXORUBICIN SOLUTION FOR INJECTION [Suspect]
     Indication: BREAST CANCER
     Route: 042
  2. PACLITAXEL [Suspect]
     Indication: BREAST CANCER
     Route: 042
     Dates: start: 20070418
  3. INDOBUFEN [Concomitant]
     Route: 048
  4. HALOPERIDOL [Concomitant]
     Route: 048
     Dates: start: 19800101
  5. MANIDIPINE [Concomitant]
     Route: 048
     Dates: start: 20000101
  6. CARVEDILOL [Concomitant]
     Route: 048
     Dates: start: 20000101

REACTIONS (2)
  - DEEP VEIN THROMBOSIS [None]
  - PULMONARY ARTERY THROMBOSIS [None]
